FAERS Safety Report 5256105-9 (Version None)
Quarter: 2007Q1

REPORT INFORMATION
  Report Type: 
  Country: None (occurrence: None)
  Receive Date: 20070306
  Receipt Date: 20070222
  Transmission Date: 20070707
  Serious: Yes (Death)
  Sender: FDA-Public Use
  Company Number: US-JNJFOC-20061000219

PATIENT
  Sex: Female
  Weight: 65.77 kg

DRUGS (5)
  1. ORTHO EVRA [Suspect]
     Indication: MENORRHAGIA
     Route: 062
  2. ORTHO EVRA [Suspect]
     Indication: MENSTRUATION IRREGULAR
     Route: 062
  3. SYNTHROID [Concomitant]
     Indication: THYROID DISORDER
  4. TEGRETOL [Concomitant]
     Indication: BIPOLAR DISORDER
  5. WELLBUTRIN [Concomitant]
     Indication: DRUG USE FOR UNKNOWN INDICATION

REACTIONS (1)
  - PULMONARY EMBOLISM [None]
